FAERS Safety Report 11299181 (Version 1)
Quarter: 2015Q3

REPORT INFORMATION
  Report Type: Spontaneous
  Country: US (occurrence: US)
  Receive Date: 20150722
  Receipt Date: 20150722
  Transmission Date: 20151125
  Serious: No
  Sender: FDA-Public Use
  Company Number: US-ELI_LILLY_AND_COMPANY-US201208000779

PATIENT
  Age: 55 Year
  Sex: Male

DRUGS (6)
  1. ATENOLOL. [Concomitant]
     Active Substance: ATENOLOL
     Dosage: 50 MG, UNKNOWN
  2. NIACIN. [Concomitant]
     Active Substance: NIACIN
     Dosage: 2000 U, UNKNOWN
  3. AMFETAMINE W/DEXAMFETAMINE [Concomitant]
     Active Substance: AMPHETAMINE SULFATE\DEXTROAMPHETAMINE
     Dosage: 10 (UNITS UNSPECIFIED), UNKNOWN
  4. ASPIRIN. [Concomitant]
     Active Substance: ASPIRIN
     Dosage: 81 MG, UNKNOWN
  5. MULTIVITAMINS [Concomitant]
     Active Substance: VITAMINS
     Dosage: UNK UNK, UNKNOWN
  6. EFFIENT [Suspect]
     Active Substance: PRASUGREL HYDROCHLORIDE
     Indication: STENT PLACEMENT
     Dosage: 10 MG, QD
     Dates: start: 201207

REACTIONS (3)
  - Temperature intolerance [Unknown]
  - Dyspnoea [Unknown]
  - Blood pressure increased [Unknown]

NARRATIVE: CASE EVENT DATE: 201207
